FAERS Safety Report 4301032-4 (Version None)
Quarter: 2004Q1

REPORT INFORMATION
  Report Type: 
  Country: None (occurrence: None)
  Receive Date: 20040218
  Receipt Date: 20031205
  Transmission Date: 20041129
  Serious: No
  Sender: FDA-Public Use
  Company Number: 2003-12-0457

PATIENT
  Age: 55 Year
  Sex: Female
  Weight: 47.6277 kg

DRUGS (4)
  1. PEG-INTRON [Suspect]
     Indication: HEPATITIS C
     Dosage: 80 MCG SUBCUTANEOUS
     Route: 058
     Dates: start: 20030906
  2. REBETOL [Suspect]
     Indication: HEPATITIS C
     Dosage: 800-200 MG* ORAL; 800 MG, 400 MG ORAL; 200 MG QD
     Route: 048
     Dates: start: 20030901
  3. REBETOL [Suspect]
     Indication: HEPATITIS C
     Dosage: 800-200 MG* ORAL; 800 MG, 400 MG ORAL; 200 MG QD
     Route: 048
     Dates: start: 20030906
  4. FOSAMAX [Concomitant]

REACTIONS (5)
  - DISTURBANCE IN ATTENTION [None]
  - DIZZINESS [None]
  - IRRITABILITY [None]
  - TACHYCARDIA [None]
  - WEIGHT DECREASED [None]
